FAERS Safety Report 11877951 (Version 1)
Quarter: 2015Q4

REPORT INFORMATION
  Report Type: Other
  Country: GB (occurrence: GB)
  Receive Date: 20151230
  Receipt Date: 20151230
  Transmission Date: 20160305
  Serious: Yes (Hospitalization)
  Sender: FDA-Public Use
  Company Number: GB-CIPLA LTD.-2015GB09864

PATIENT

DRUGS (2)
  1. SODIUM VALPROATE [Suspect]
     Active Substance: VALPROATE SODIUM
     Indication: EPILEPSY
     Dosage: 100 MG, BID
     Route: 048
     Dates: start: 201507, end: 201508
  2. LAMOTRIGINE. [Suspect]
     Active Substance: LAMOTRIGINE
     Indication: EPILEPSY
     Dosage: 100 MG, BID
     Route: 048
     Dates: start: 2014, end: 20151029

REACTIONS (1)
  - Hypersensitivity vasculitis [Recovering/Resolving]

NARRATIVE: CASE EVENT DATE: 20151026
